FAERS Safety Report 7893332-6 (Version None)
Quarter: 2011Q4

REPORT INFORMATION
  Report Type: 
  Country: None (occurrence: None)
  Receive Date: 20111104
  Receipt Date: 20111026
  Transmission Date: 20120403
  Serious: Yes (Congenital Anomaly, Other)
  Sender: FDA-Public Use
  Company Number: FR-JNJFOC-20111010430

PATIENT

DRUGS (6)
  1. BUPIVACAINE HCL [Suspect]
     Route: 064
  2. ECONAZOLE NITRATE [Suspect]
     Indication: MATERNAL EXPOSURE DURING PREGNANCY
     Route: 064
  3. SUFENTANIL CITRATE [Suspect]
     Indication: MATERNAL EXPOSURE DURING PREGNANCY
     Dosage: MOTHER ROUTE-IV BLOUS
     Route: 064
  4. SUFENTANIL CITRATE [Suspect]
     Dosage: ROUTE - EPIDURAL
     Route: 064
  5. BUPIVACAINE HCL [Suspect]
     Indication: MATERNAL EXPOSURE DURING PREGNANCY
     Dosage: 0.125%
     Route: 064
  6. CHLORHEXIDINE GLUCONATE [Suspect]
     Indication: MATERNAL EXPOSURE DURING PREGNANCY
     Route: 064

REACTIONS (2)
  - FOETAL ARRHYTHMIA [None]
  - FOETAL EXPOSURE DURING DELIVERY [None]
